FAERS Safety Report 13640332 (Version 3)
Quarter: 2017Q3

REPORT INFORMATION
  Report Type: Spontaneous
  Country: DE (occurrence: DE)
  Receive Date: 20170610
  Receipt Date: 20170720
  Transmission Date: 20171127
  Serious: Yes (Life-Threatening, Hospitalization, Disabling, Other)
  Sender: FDA-Public Use
  Company Number: DE-AMGEN-DEUSP2017088521

PATIENT
  Age: 46 Year
  Sex: Male
  Weight: 100 kg

DRUGS (3)
  1. ENBREL [Suspect]
     Active Substance: ETANERCEPT
     Indication: SPONDYLITIS
     Dosage: 50 MG 1X/WEEK
     Route: 058
     Dates: start: 20151021, end: 201704
  2. VOLTAREN [Concomitant]
     Active Substance: DICLOFENAC SODIUM
     Indication: SPONDYLITIS
     Dosage: 75 MG, AS NEEDED
  3. ENBREL [Suspect]
     Active Substance: ETANERCEPT
     Indication: SACROILIITIS

REACTIONS (3)
  - Endocarditis candida [Recovered/Resolved with Sequelae]
  - Endocarditis staphylococcal [Recovered/Resolved with Sequelae]
  - Sepsis [Unknown]

NARRATIVE: CASE EVENT DATE: 201704
